FAERS Safety Report 25607830 (Version 1)
Quarter: 2025Q3

REPORT INFORMATION
  Report Type: Spontaneous
  Country: CA (occurrence: CA)
  Receive Date: 20250725
  Receipt Date: 20250725
  Transmission Date: 20251021
  Serious: Yes (Hospitalization)
  Sender: SANDOZ
  Company Number: CA-SANDOZ-SDZ2025CA052547

PATIENT
  Age: 79 Year
  Sex: Female

DRUGS (1)
  1. ADALIMUMAB [Suspect]
     Active Substance: ADALIMUMAB
     Indication: Rheumatoid arthritis
     Dosage: 40 MG, Q2W (1 EVERY 2 WEEKS)
     Route: 065

REACTIONS (9)
  - Skin wound [Not Recovered/Not Resolved]
  - Skin atrophy [Not Recovered/Not Resolved]
  - Fall [Not Recovered/Not Resolved]
  - Peripheral swelling [Not Recovered/Not Resolved]
  - Arthralgia [Not Recovered/Not Resolved]
  - Skin haemorrhage [Not Recovered/Not Resolved]
  - Back pain [Not Recovered/Not Resolved]
  - Cellulitis [Not Recovered/Not Resolved]
  - Localised infection [Not Recovered/Not Resolved]
